FAERS Safety Report 12198221 (Version 1)
Quarter: 2016Q1

REPORT INFORMATION
  Report Type: Spontaneous
  Country: US (occurrence: US)
  Receive Date: 20160322
  Receipt Date: 20160322
  Transmission Date: 20160526
  Serious: No
  Sender: FDA-Public Use
  Company Number: US-JNJFOC-20150320124

PATIENT
  Sex: Male
  Weight: 92.08 kg

DRUGS (9)
  1. RISPERDAL CONSTA [Suspect]
     Active Substance: RISPERIDONE
     Indication: HYPOTONIA
     Route: 030
     Dates: start: 2004, end: 201601
  2. GEODON [Suspect]
     Active Substance: ZIPRASIDONE HYDROCHLORIDE\ZIPRASIDONE MESYLATE
     Indication: HYPOTONIA
     Dosage: 6 EVERY MORNING AND 6 EVERY NIGHT
     Route: 048
     Dates: start: 1997, end: 2015
  3. COGENTIN [Suspect]
     Active Substance: BENZTROPINE MESYLATE
     Indication: PRODUCT USED FOR UNKNOWN INDICATION
     Route: 065
  4. DEPAKOTE [Suspect]
     Active Substance: DIVALPROEX SODIUM
     Indication: MUSCLE RELAXANT THERAPY
     Dosage: SIX CAPSULES IN THE MORNING AND SIX CAPSULES AT NIGHT
     Route: 065
     Dates: start: 2004
  5. OLANZAPINE. [Concomitant]
     Active Substance: OLANZAPINE
     Route: 065
  6. ATENOLOL. [Concomitant]
     Active Substance: ATENOLOL
     Route: 065
  7. VALPROIC ACID. [Suspect]
     Active Substance: VALPROIC ACID
     Indication: MOOD SWINGS
     Dosage: ONE IN THE MORNING AND ONE AT NIGHT
     Route: 065
  8. ANDROSTENEDIONE [Suspect]
     Active Substance: ANDROSTENEDIONE
     Indication: PRODUCT USED FOR UNKNOWN INDICATION
     Route: 065
  9. RISPERDAL [Suspect]
     Active Substance: RISPERIDONE
     Indication: PRODUCT USED FOR UNKNOWN INDICATION
     Route: 065

REACTIONS (13)
  - Testicular disorder [Unknown]
  - Weight increased [Unknown]
  - Dry mouth [Unknown]
  - Off label use [Unknown]
  - Sluggishness [Unknown]
  - Hernia [Unknown]
  - Vision blurred [Not Recovered/Not Resolved]
  - Gynaecomastia [Recovering/Resolving]
  - Hypersomnia [Unknown]
  - Palpitations [Unknown]
  - Product use issue [Unknown]
  - Erectile dysfunction [Recovering/Resolving]
  - Inappropriate schedule of drug administration [Unknown]

NARRATIVE: CASE EVENT DATE: 1973
